FAERS Safety Report 17996283 (Version 1)
Quarter: 2020Q3

REPORT INFORMATION
  Report Type: Spontaneous
  Country: US (occurrence: US)
  Receive Date: 20200708
  Receipt Date: 20200708
  Transmission Date: 20201103
  Serious: Yes (Other)
  Sender: FDA-Public Use
  Company Number: US-CIPLA LTD.-2020US03092

PATIENT

DRUGS (5)
  1. HUMULIN NOS [Interacting]
     Active Substance: INSULIN HUMAN
     Indication: DIABETES MELLITUS
     Dosage: UNK (70/30)
     Route: 065
  2. WARFARIN [Interacting]
     Active Substance: WARFARIN
     Dosage: 6 MG (ON SATURDAY AND SUNDAY)
     Route: 065
  3. WARFARIN [Suspect]
     Active Substance: WARFARIN
     Indication: DEEP VEIN THROMBOSIS
     Dosage: 7.5 MILLIGRAM, QD (DAILY)
     Route: 065
  4. GLYBURIDE. [Concomitant]
     Active Substance: GLYBURIDE
     Indication: DIABETES MELLITUS
     Dosage: UNK
     Route: 065
  5. WARFARIN [Interacting]
     Active Substance: WARFARIN
     Dosage: 7.5 MILLIGRAM, QD (DAILY FOR A 7 DAY PERIOD) (RESTARTED)
     Route: 065

REACTIONS (7)
  - Injection site haemorrhage [Unknown]
  - Vessel puncture site haemorrhage [Unknown]
  - Diarrhoea [Unknown]
  - Potentiating drug interaction [Unknown]
  - Intentional underdose [Unknown]
  - Intentional dose omission [Unknown]
  - Malaise [Unknown]
